FAERS Safety Report 6258751-2 (Version None)
Quarter: 2009Q3

REPORT INFORMATION
  Report Type: 
  Country: None (occurrence: None)
  Receive Date: 20090707
  Receipt Date: 20090624
  Transmission Date: 20100115
  Serious: Yes (Other)
  Sender: FDA-Public Use
  Company Number: B0582252A

PATIENT
  Sex: Male
  Weight: 70 kg

DRUGS (7)
  1. AMOXIL [Suspect]
     Indication: DRUG USE FOR UNKNOWN INDICATION
     Route: 048
  2. ESOMEPRAZOLE MAGNESIUM [Suspect]
     Indication: DRUG USE FOR UNKNOWN INDICATION
     Route: 048
  3. KLACID [Suspect]
     Indication: DRUG USE FOR UNKNOWN INDICATION
     Route: 048
  4. AVAPRO [Concomitant]
  5. ANTIDEPRESSANT [Concomitant]
  6. SEDATIVE [Concomitant]
  7. UNKNOWN DRUG [Concomitant]

REACTIONS (1)
  - BLOOD SODIUM DECREASED [None]
